FAERS Safety Report 5425867-X (Version None)
Quarter: 2007Q3

REPORT INFORMATION
  Report Type: 
  Country: None (occurrence: None)
  Receive Date: 20070823
  Receipt Date: 20070817
  Transmission Date: 20080115
  Serious: Yes (Hospitalization)
  Sender: FDA-Public Use
  Company Number: 2007SP016734

PATIENT
  Age: 43 Year
  Sex: Female

DRUGS (10)
  1. PEG-INTRON [Suspect]
     Indication: HEPATITIS C
     Dosage: SC
     Route: 058
     Dates: start: 20070620
  2. RIBAVIRIN [Suspect]
     Indication: HEPATITIS C
     Dosage: PO
     Route: 048
     Dates: start: 20070620
  3. CYMBALTA [Concomitant]
  4. HYDROCODONE BITARTRATE [Concomitant]
  5. FUROSEMIDE /00032602/ [Concomitant]
  6. VISTARIL /00058402/ [Concomitant]
  7. COMPAZINE /00013302/ [Concomitant]
  8. KLOR-CON [Concomitant]
  9. STOOL SOFTENER [Concomitant]
  10. RANITIDINE /00550802 [Concomitant]

REACTIONS (7)
  - COLONIC POLYP [None]
  - CONSTIPATION [None]
  - DEHYDRATION [None]
  - GASTRIC ULCER [None]
  - HAEMOGLOBIN DECREASED [None]
  - HAEMORRHAGE [None]
  - HELICOBACTER GASTRITIS [None]
